FAERS Safety Report 4615167-X (Version None)
Quarter: 2005Q1

REPORT INFORMATION
  Report Type: 
  Country: None (occurrence: None)
  Receive Date: 20050322
  Receipt Date: 20050311
  Transmission Date: 20050727
  Serious: Yes (Hospitalization)
  Sender: FDA-Public Use
  Company Number: FR-GLAXOSMITHKLINE-B0374514A

PATIENT
  Age: 45 Year
  Sex: Male
  Weight: 74 kg

DRUGS (17)
  1. ZIAGEN [Suspect]
     Indication: HIV INFECTION
     Dosage: 600MG PER DAY
     Route: 048
     Dates: start: 20030326, end: 20040716
  2. EPIVIR [Suspect]
     Indication: HIV INFECTION
     Route: 048
     Dates: start: 20040810, end: 20040812
  3. ZERIT [Suspect]
     Indication: HIV INFECTION
     Dosage: 80MG PER DAY
     Route: 048
     Dates: start: 20030326, end: 20040716
  4. VIREAD [Suspect]
     Indication: HIV INFECTION
     Route: 048
     Dates: start: 20040810, end: 20040812
  5. VIRAMUNE [Suspect]
     Indication: HIV INFECTION
     Route: 048
     Dates: start: 20040820
  6. KALETRA [Concomitant]
     Indication: HIV INFECTION
     Dosage: 4CAP TWICE PER DAY
     Route: 048
     Dates: start: 20030326
  7. DITROPAN [Concomitant]
     Route: 065
  8. XATRAL [Concomitant]
     Route: 065
  9. URBANYL [Concomitant]
     Route: 065
  10. PARKINANE [Concomitant]
     Route: 065
  11. DALACINE [Concomitant]
     Route: 065
  12. MALOCIDE [Concomitant]
     Route: 065
  13. OMEPRAZOLE [Concomitant]
     Route: 065
  14. PRIMPERAN TAB [Concomitant]
     Route: 065
  15. RISPERDAL [Concomitant]
     Route: 065
  16. DEROXAT [Concomitant]
     Route: 065
  17. ZOVIRAX [Concomitant]
     Route: 065

REACTIONS (7)
  - ABDOMINAL PAIN [None]
  - HEPATIC STEATOSIS [None]
  - HEPATOCELLULAR DAMAGE [None]
  - HYPERLACTACIDAEMIA [None]
  - TONGUE DISORDER [None]
  - VOMITING [None]
  - X-RAY ABNORMAL [None]
